FAERS Safety Report 4825294-X (Version None)
Quarter: 2005Q4

REPORT INFORMATION
  Report Type: 
  Country: None (occurrence: None)
  Receive Date: 20051109
  Receipt Date: 20051026
  Transmission Date: 20060501
  Serious: Yes (Hospitalization, Other)
  Sender: FDA-Public Use
  Company Number: US-2005-006985

PATIENT
  Age: 45 Year
  Sex: Female
  Weight: 73 kg

DRUGS (5)
  1. BETASERON [Suspect]
     Indication: RELAPSING-REMITTING MULTIPLE SCLEROSIS
     Dosage: 8 MIU, EVERY 2D, SUBCUTANEOUS
     Route: 057
     Dates: start: 20020402, end: 20050313
  2. PROVIGIL [Concomitant]
  3. OXYBUTYNIN CHLORIDE [Concomitant]
  4. PAXIL [Concomitant]
  5. KETOCONAZOLE [Concomitant]

REACTIONS (18)
  - ASTHENIA [None]
  - BREAST ABSCESS [None]
  - BREAST CANCER METASTATIC [None]
  - BREAST CANCER STAGE III [None]
  - BREAST CELLULITIS [None]
  - DEPRESSION [None]
  - LOBAR PNEUMONIA [None]
  - LYMPHADENOPATHY MEDIASTINAL [None]
  - LYMPHANGIOPATHY [None]
  - LYMPHATIC DISORDER [None]
  - MALIGNANT NEOPLASM PROGRESSION [None]
  - METASTASES TO BONE [None]
  - METASTASES TO LIVER [None]
  - METASTASES TO LYMPH NODES [None]
  - METASTASES TO SPINE [None]
  - PAIN [None]
  - PLEURAL EFFUSION [None]
  - URINARY INCONTINENCE [None]
